FAERS Safety Report 9456704 (Version 1)
Quarter: 2013Q3

REPORT INFORMATION
  Report Type: Spontaneous
  Country: US (occurrence: US)
  Receive Date: 20130813
  Receipt Date: 20130813
  Transmission Date: 20140515
  Serious: Yes (Death)
  Sender: FDA-Public Use
  Company Number: CHPA2013US012676

PATIENT
  Age: 68 Year
  Sex: Male

DRUGS (2)
  1. VOLTAREN GEL [Suspect]
     Indication: BACK PAIN
     Dosage: UNK, 6 TIMES A DAY
     Route: 061
     Dates: end: 20120726
  2. ANALGESICS [Concomitant]
     Indication: PAIN
     Dosage: UNK, UNK

REACTIONS (4)
  - Death [Fatal]
  - Off label use [Unknown]
  - Therapeutic response unexpected [Unknown]
  - Drug administered at inappropriate site [Unknown]
